FAERS Safety Report 6738541-4 (Version None)
Quarter: 2010Q2

REPORT INFORMATION
  Report Type: 
  Country: None (occurrence: None)
  Receive Date: 20100524
  Receipt Date: 20100519
  Transmission Date: 20101027
  Serious: Yes (Hospitalization)
  Sender: FDA-Public Use
  Company Number: US-ELI_LILLY_AND_COMPANY-US201005005320

PATIENT
  Age: 65 Year
  Sex: Male

DRUGS (3)
  1. HUMALOG [Suspect]
     Indication: DIABETES MELLITUS
     Dosage: 8 U, OTHER
     Dates: start: 20081101
  2. HUMALOG [Suspect]
     Dosage: 8 U, OTHER
     Dates: start: 20081101
  3. LANTUS [Concomitant]

REACTIONS (7)
  - BLOOD GLUCOSE DECREASED [None]
  - CHOLELITHIASIS [None]
  - HYPERHIDROSIS [None]
  - PAIN [None]
  - PANCREATIC CYST [None]
  - PANCREATIC DUCT OBSTRUCTION [None]
  - PANCREATITIS [None]
